FAERS Safety Report 4512225-5 (Version None)
Quarter: 2004Q4

REPORT INFORMATION
  Report Type: 
  Country: None (occurrence: None)
  Receive Date: 20041123
  Receipt Date: 20041115
  Transmission Date: 20050328
  Serious: Yes (Life-Threatening, Hospitalization)
  Sender: FDA-Public Use
  Company Number: 200410588BFR

PATIENT
  Age: 78 Year
  Sex: Male

DRUGS (6)
  1. IZILOX (MOXIFLOXACIN HYDROCHLORIDE) [Suspect]
     Indication: LUNG INFECTION
     Dosage: 400 MG, TOTAL DAILY, ORAL
     Route: 048
     Dates: start: 20040823, end: 20040828
  2. CORDARONE [Suspect]
     Dosage: 1000 MG, TOTAL DAILY, ORAL
     Route: 048
     Dates: end: 20040828
  3. TADENAN [Concomitant]
  4. TRIATEC [Concomitant]
  5. ASPIRIN [Concomitant]
  6. PREVISCAN [Concomitant]

REACTIONS (8)
  - ACUTE PULMONARY OEDEMA [None]
  - CARDIAC FAILURE [None]
  - CHEST PAIN [None]
  - CONDITION AGGRAVATED [None]
  - DYSPNOEA [None]
  - HAEMOPTYSIS [None]
  - RENAL FAILURE [None]
  - TORSADE DE POINTES [None]
